FAERS Safety Report 10284674 (Version 6)
Quarter: 2014Q4

REPORT INFORMATION
  Report Type: Spontaneous
  Country: CN (occurrence: CN)
  Receive Date: 20140708
  Receipt Date: 20141117
  Transmission Date: 20150528
  Serious: Yes (Other)
  Sender: FDA-Public Use
  Company Number: CN-BAYER-2014-098224

PATIENT
  Age: 52 Year
  Sex: Male

DRUGS (3)
  1. NEXAVAR [Suspect]
     Active Substance: SORAFENIB
     Indication: RENAL CELL CARCINOMA
     Dosage: 400 MG, BID (ON THE MORNING AND AT NIGHT)
     Route: 048
  2. NEXAVAR [Suspect]
     Active Substance: SORAFENIB
     Indication: RENAL CELL CARCINOMA
     Dosage: 200 MG, BID (MORNING AND NIGHT)
  3. NEXAVAR [Suspect]
     Active Substance: SORAFENIB
     Indication: RENAL CELL CARCINOMA
     Dosage: 400 MG, BID

REACTIONS (15)
  - Vomiting [Recovering/Resolving]
  - Discomfort [None]
  - Eating disorder [None]
  - Metastases to heart [None]
  - Muscle twitching [Recovered/Resolved]
  - Decreased appetite [Recovering/Resolving]
  - Alopecia [None]
  - Metastasis [None]
  - Renal cell carcinoma [None]
  - Epilepsy [Recovered/Resolved]
  - Loss of consciousness [Recovered/Resolved]
  - Epistaxis [None]
  - Nausea [Recovering/Resolving]
  - Rash [Recovering/Resolving]
  - Diarrhoea [Recovering/Resolving]

NARRATIVE: CASE EVENT DATE: 201407
